FAERS Safety Report 7312023-3 (Version None)
Quarter: 2011Q1

REPORT INFORMATION
  Report Type: 
  Country: None (occurrence: None)
  Receive Date: 20110224
  Receipt Date: 20110218
  Transmission Date: 20110831
  Serious: Yes (Other)
  Sender: FDA-Public Use
  Company Number: JP-PFIZER INC-2011020032

PATIENT
  Age: 53 Year
  Sex: Male

DRUGS (5)
  1. BLOPRESS [Suspect]
     Dosage: UNK
  2. ASPIRIN [Suspect]
     Dosage: UNK
  3. AMARYL [Suspect]
     Dosage: UNK
     Dates: start: 20101013
  4. CADUET [Suspect]
     Dosage: UNK
     Route: 048
     Dates: start: 20101214
  5. ACTOS [Suspect]
     Dosage: UNK

REACTIONS (1)
  - VISUAL ACUITY REDUCED [None]
